FAERS Safety Report 7429097-1 (Version None)
Quarter: 2011Q2

REPORT INFORMATION
  Report Type: 
  Country: None (occurrence: None)
  Receive Date: 20110421
  Receipt Date: 20110415
  Transmission Date: 20111010
  Serious: Yes (Other)
  Sender: FDA-Public Use
  Company Number: GB-ROCHE-771977

PATIENT

DRUGS (1)
  1. XELODA [Suspect]
     Route: 065

REACTIONS (1)
  - CARDIAC DISORDER [None]
